FAERS Safety Report 6985042-4 (Version None)
Quarter: 2010Q3

REPORT INFORMATION
  Report Type: 
  Country: None (occurrence: None)
  Receive Date: 20100915
  Receipt Date: 20100903
  Transmission Date: 20110219
  Serious: Yes (Hospitalization)
  Sender: FDA-Public Use
  Company Number: PHFR2010GB01451

PATIENT
  Sex: Female
  Weight: 90 kg

DRUGS (11)
  1. CLOZARIL [Suspect]
     Indication: SCHIZOPHRENIA
     Dosage: 50MG MANE, 175MG TEATIME, 300MG NOCTE
     Route: 048
     Dates: start: 20031202
  2. AMISULPRIDE [Suspect]
     Indication: SCHIZOPHRENIA
     Dosage: 200 MG/DAY
  3. CO-DYDRAMOL [Concomitant]
     Indication: PAIN
     Dosage: PRN
     Route: 048
  4. EPILIM CHRONO [Concomitant]
     Indication: SCHIZOAFFECTIVE DISORDER
     Dosage: 1200MG/DAY
     Route: 048
  5. METFORMIN [Concomitant]
     Indication: TYPE 2 DIABETES MELLITUS
     Dosage: 1000MG/DAY
  6. OMEPRAZOLE [Concomitant]
     Indication: DYSPEPSIA
     Dosage: 20MG/DAY
     Route: 048
  7. SERTRALINE HYDROCHLORIDE [Concomitant]
     Indication: DEPRESSION
     Dosage: 150MG/DAY
     Route: 048
  8. SIMVASTATIN [Concomitant]
     Indication: TYPE 2 DIABETES MELLITUS
     Dosage: 40MG/DAY
     Route: 048
  9. TETRABENAZINE [Concomitant]
     Indication: FUNGAL SKIN INFECTION
     Dosage: 75MG/DAY
     Route: 048
  10. ZOPICLONE [Concomitant]
     Indication: INSOMNIA
     Dosage: 7.5MG/DAY
     Route: 048
  11. SYMBICORT [Concomitant]
     Indication: ASTHMA
     Dosage: 2 PUFFS BID

REACTIONS (3)
  - ABSCESS DRAINAGE [None]
  - DENTAL OPERATION [None]
  - TOOTH ABSCESS [None]
